FAERS Safety Report 8870011 (Version 2)
Quarter: 2012Q4

REPORT INFORMATION
  Report Type: 
  Country: AU (occurrence: AU)
  Receive Date: 20121026
  Receipt Date: 20121127
  Transmission Date: 20130627
  Serious: Yes (Death, Hospitalization)
  Sender: FDA-Public Use
  Company Number: AU-B.I. PHARMACEUTICALS,INC./RIDGEFIELD-2012-AU-01805AU

PATIENT
  Age: 78 Year
  Sex: Female

DRUGS (10)
  1. PRADAXA [Suspect]
     Indication: CEREBROVASCULAR ACCIDENT PROPHYLAXIS
     Dosage: 220 mg
     Dates: start: 20111014
  2. PRADAXA [Suspect]
     Indication: ATRIAL FIBRILLATION
  3. MADOPAR [Concomitant]
     Dosage: 200/50mg
  4. CHOLECALCIFEROL [Concomitant]
  5. LORAZEPAM [Concomitant]
     Dosage: 1.5 mg
  6. MIRTAZEPINE [Concomitant]
     Dosage: 60 mg
  7. QUETIAPINE [Concomitant]
     Dosage: 50 mg
  8. FLUDROCORTISONE [Concomitant]
     Dosage: 200 mcg
  9. PARACETAMOL [Concomitant]
     Dosage: 4 g
  10. FRUSEMIDE [Concomitant]
     Dosage: 20 mg

REACTIONS (3)
  - Death [Fatal]
  - Respiratory tract infection [Unknown]
  - Dysphagia [Unknown]
